FAERS Safety Report 15208926 (Version 1)
Quarter: 2018Q3

REPORT INFORMATION
  Report Type: Spontaneous
  Country: US (occurrence: US)
  Receive Date: 20180727
  Receipt Date: 20180727
  Transmission Date: 20181010
  Serious: No
  Sender: FDA-Public Use
  Company Number: US-SHIRE-US201828856

PATIENT
  Sex: Female
  Weight: 63.49 kg

DRUGS (1)
  1. GATTEX [Suspect]
     Active Substance: TEDUGLUTIDE\WATER
     Indication: PRODUCT USED FOR UNKNOWN INDICATION
     Dosage: 0.34 IU, UNK
     Route: 065
     Dates: start: 20160425

REACTIONS (2)
  - Weight normal [Recovering/Resolving]
  - Drug ineffective [Recovering/Resolving]
